FAERS Safety Report 19971240 (Version 37)
Quarter: 2024Q4

REPORT INFORMATION
  Report Type: Spontaneous
  Country: CA (occurrence: CA)
  Receive Date: 20211020
  Receipt Date: 20241231
  Transmission Date: 20250115
  Serious: Yes (Other)
  Sender: CELLTRION
  Company Number: CA-CELLTRION INC.-2021CA010146

PATIENT

DRUGS (31)
  1. INFLECTRA [Suspect]
     Active Substance: INFLIXIMAB-DYYB
     Indication: Crohn^s disease
     Dosage: 5 MG/KG, INDUCTION WEEK 0 2 6 AND THEN Q 8 WEEKS, DOSE ROUNDED TO NEAREST HUNDRED
     Route: 042
     Dates: start: 20210706
  2. INFLECTRA [Suspect]
     Active Substance: INFLIXIMAB-DYYB
     Dosage: 5 MG/KG, AT 0, 2, 6 WEEKS THEN EVERY 8 WEEKS
     Route: 042
     Dates: start: 20210813
  3. INFLECTRA [Suspect]
     Active Substance: INFLIXIMAB-DYYB
     Dosage: 5 MG/KG, AT 0, 2, 6 WEEKS THEN EVERY 8 WEEKS
     Route: 042
     Dates: start: 20211008
  4. INFLECTRA [Suspect]
     Active Substance: INFLIXIMAB-DYYB
     Dosage: 5 MG/KG, AT 0, 2, 6 WEEKS THEN EVERY 8 WEEKS
     Route: 042
     Dates: start: 20211203
  5. INFLECTRA [Suspect]
     Active Substance: INFLIXIMAB-DYYB
     Dosage: 5 MG/KG, INDUCTION WEEK AT 0, 2, 6 WEEKS THEN EVERY 8 WEEKS (DOSE ROUNDED TO NEAREST HUNDRED)
     Route: 042
     Dates: start: 20220128, end: 20220128
  6. INFLECTRA [Suspect]
     Active Substance: INFLIXIMAB-DYYB
     Dosage: 5 MG/KG, REINDUCTION AT WEEK 0, 2 AND 6, THEN EVERY 8 WEEKS, DOSE ROUNDED TO NEAREST VIAL
     Route: 042
     Dates: start: 20220901, end: 20220901
  7. INFLECTRA [Suspect]
     Active Substance: INFLIXIMAB-DYYB
     Dosage: 5 MG/KG, REINDUCTION AT WEEK 0, 2 AND 6, THEN EVERY 8 WEEKS, DOSE ROUNDED TO NEAREST VIAL
     Route: 042
     Dates: start: 20220912
  8. INFLECTRA [Suspect]
     Active Substance: INFLIXIMAB-DYYB
     Dosage: 5 MG/KG, REINDUCTION AT WEEK 0, 2 AND 6, THEN EVERY 8 WEEKS, DOSE ROUNDED TO NEAREST VIAL
     Route: 042
     Dates: start: 20221012
  9. INFLECTRA [Suspect]
     Active Substance: INFLIXIMAB-DYYB
     Dosage: 5 MG/KG, REINDUCTION AT WEEK 0, 2 AND 6, THEN EVERY 8 WEEKS, DOSE ROUNDED TO NEAREST VIAL
     Route: 042
     Dates: start: 20221207
  10. INFLECTRA [Suspect]
     Active Substance: INFLIXIMAB-DYYB
     Dosage: 5 MG/KG, REINDUCTION AT WEEK 0, 2 AND 6, THEN EVERY 8 WEEKS, DOSE ROUNDED TO NEAREST VIAL
     Route: 042
     Dates: start: 20230405
  11. INFLECTRA [Suspect]
     Active Substance: INFLIXIMAB-DYYB
     Dosage: 300 MG(5 MG/KG),EVERY 8 WKS(DOSE ROUNDED TO NEAREST VIAL,REINDCTN AT WK 0,2 + 6, THEN EVERY 8 WKS]
     Route: 042
     Dates: start: 20230601
  12. INFLECTRA [Suspect]
     Active Substance: INFLIXIMAB-DYYB
     Dosage: 400 MG (7.5MG/KG), EVERY 7 WEEKS
     Route: 042
     Dates: start: 20230725
  13. INFLECTRA [Suspect]
     Active Substance: INFLIXIMAB-DYYB
     Dosage: 400 MG (7.5MG/KG), EVERY 7 WEEKS
     Route: 042
     Dates: start: 20230914
  14. INFLECTRA [Suspect]
     Active Substance: INFLIXIMAB-DYYB
     Dosage: 400 MG  (7500 UG/KG), AFTER 7 WEEKS
     Route: 042
     Dates: start: 20231102
  15. INFLECTRA [Suspect]
     Active Substance: INFLIXIMAB-DYYB
     Dosage: 400 MG, AFTER 7 WEEKS (SUPPOSED TO RECEIVE 10 MG/KG, EVERY 6 WEEKS)
     Route: 042
     Dates: start: 20231221, end: 20231221
  16. INFLECTRA [Suspect]
     Active Substance: INFLIXIMAB-DYYB
     Dosage: 570 MG (10 MG/KG), AFTER 5 WEEKS AND 4 DAYS (PRESCRIBED EVERY 4 WEEKS)
     Route: 042
     Dates: start: 20240129
  17. INFLECTRA [Suspect]
     Active Substance: INFLIXIMAB-DYYB
     Dosage: 590 MG (10 MG/KG), EVERY 4 WEEKS
     Route: 042
     Dates: start: 20240301
  18. INFLECTRA [Suspect]
     Active Substance: INFLIXIMAB-DYYB
     Dosage: 560 MG (10 MG/KG), AFTER 3 WEEKS AND 6 DAYS, (PRESCRIBED EVERY 4 WEEKS)
     Route: 042
     Dates: start: 20240328
  19. INFLECTRA [Suspect]
     Active Substance: INFLIXIMAB-DYYB
     Dosage: 10 MG/KG (560 MG), AFTER 5 WEEKS AND 5 DAYS (EVERY 4 WEEKS)
     Route: 042
     Dates: start: 20240507
  20. INFLECTRA [Suspect]
     Active Substance: INFLIXIMAB-DYYB
     Dosage: 10 MG/KG, EVERY 4 WEEKS
     Route: 042
     Dates: start: 20240604
  21. INFLECTRA [Suspect]
     Active Substance: INFLIXIMAB-DYYB
     Dosage: 510 MG (10MG/KG), EVERY 4 WEEKS
     Route: 042
     Dates: start: 20240705
  22. INFLECTRA [Suspect]
     Active Substance: INFLIXIMAB-DYYB
     Dosage: 520 MG (10MG/KG), EVERY 4 WEEKS
     Route: 042
     Dates: start: 20240802
  23. INFLECTRA [Suspect]
     Active Substance: INFLIXIMAB-DYYB
     Dosage: 530 MG (10MG/KG), AFTER 8 WEEKS (PRESCRIBED EVERY 4 WEEKS)
     Route: 042
     Dates: start: 20240927
  24. INFLECTRA [Suspect]
     Active Substance: INFLIXIMAB-DYYB
     Dosage: 510 MG,(10MG/KG),EVERY 4 WEEKS
     Route: 042
     Dates: start: 20241025
  25. INFLECTRA [Suspect]
     Active Substance: INFLIXIMAB-DYYB
     Dosage: 520 MG,(10MG/KG)EVERY 4 WEEKS
     Route: 042
     Dates: start: 20241122
  26. INFLECTRA [Suspect]
     Active Substance: INFLIXIMAB-DYYB
     Dosage: 500 MG (10 MG/KG), EVERY 4 WEEKS
     Route: 042
     Dates: start: 20241220
  27. CALCIUM [Concomitant]
     Active Substance: CALCIUM
     Dosage: 1 DF, DOSAGE NOT AVAILABLE
     Route: 065
  28. CIPRO [Concomitant]
     Active Substance: CIPROFLOXACIN HYDROCHLORIDE
     Dosage: 1 DF, FOR 14 DAYS
     Route: 065
     Dates: start: 202207
  29. FERROUS SULFATE [Concomitant]
     Active Substance: FERROUS SULFATE
     Dosage: 1 DF, DOSAGE NOT AVAILABLE
     Route: 065
  30. FLAGYL [Concomitant]
     Active Substance: METRONIDAZOLE\METRONIDAZOLE HYDROCHLORIDE
     Dosage: 1 DF, FOR 14 DAYS
     Dates: start: 202207
  31. VITAMIN B12 [Concomitant]
     Active Substance: CYANOCOBALAMIN
     Dosage: 1 DF, DOSAGE NOT AVAILABLE
     Route: 065

REACTIONS (27)
  - Anal abscess [Unknown]
  - Ileal stenosis [Unknown]
  - Accident at work [Unknown]
  - Wound [Recovered/Resolved]
  - Condition aggravated [Not Recovered/Not Resolved]
  - Vomiting [Not Recovered/Not Resolved]
  - Drug ineffective [Unknown]
  - Therapeutic response shortened [Unknown]
  - Drug level decreased [Unknown]
  - Malaise [Not Recovered/Not Resolved]
  - Vomiting [Recovered/Resolved]
  - Eating disorder [Recovering/Resolving]
  - Discomfort [Recovering/Resolving]
  - Anxiety [Not Recovered/Not Resolved]
  - Rectal discharge [Not Recovered/Not Resolved]
  - Anal fissure [Recovered/Resolved]
  - Proctalgia [Not Recovered/Not Resolved]
  - Dizziness [Recovering/Resolving]
  - Nausea [Recovered/Resolved]
  - Pyrexia [Not Recovered/Not Resolved]
  - Fatigue [Not Recovered/Not Resolved]
  - Constipation [Not Recovered/Not Resolved]
  - Off label use [Unknown]
  - Off label use [Unknown]
  - Intentional product use issue [Unknown]
  - Incorrect dose administered [Unknown]
  - Inappropriate schedule of product administration [Unknown]

NARRATIVE: CASE EVENT DATE: 20210101
